FAERS Safety Report 9363783 (Version 1)
Quarter: 2013Q2

REPORT INFORMATION
  Report Type: Report from Study
  Country: US (occurrence: UG)
  Receive Date: 20130624
  Receipt Date: 20130624
  Transmission Date: 20140414
  Serious: Yes (Hospitalization)
  Sender: FDA-Public Use
  Company Number: UG-B.I. PHARMACEUTICALS,INC./RIDGEFIELD-2013-BI-17925GD

PATIENT
  Sex: Female

DRUGS (4)
  1. VIRAMUNE [Suspect]
     Indication: HIV INFECTION
  2. VIRAMUNE [Suspect]
  3. ANTI-HIV AGENTS [Concomitant]
     Indication: HIV INFECTION
  4. TRIMETHOPRIM-SULFAMETHOXAZOLE [Concomitant]

REACTIONS (4)
  - Rash papular [Recovered/Resolved]
  - Blister [Recovered/Resolved]
  - Mouth ulceration [Recovered/Resolved]
  - Conjunctival hyperaemia [Recovered/Resolved]
